FAERS Safety Report 23125305 (Version 1)
Quarter: 2023Q4

REPORT INFORMATION
  Report Type: Report from Study
  Country: EG (occurrence: EG)
  Receive Date: 20231030
  Receipt Date: 20231030
  Transmission Date: 20240110
  Serious: Yes (Other)
  Sender: FDA-Public Use
  Company Number: EG-002147023-NVSC2023EG229885

PATIENT
  Sex: Male

DRUGS (1)
  1. COSENTYX [Suspect]
     Active Substance: SECUKINUMAB
     Indication: Psoriatic arthropathy
     Dosage: 1 DOSAGE FORM, QMO (1 PEN MONTHLY AS MAINTENANCE DOSE FOR 3 MONTHS WITHOUT LOADING DOSE)
     Route: 058
     Dates: start: 202210

REACTIONS (3)
  - Psoriatic arthropathy [Recovered/Resolved]
  - Condition aggravated [Recovered/Resolved]
  - Off label use [Not Recovered/Not Resolved]

NARRATIVE: CASE EVENT DATE: 20220101
